FAERS Safety Report 21839393 (Version 4)
Quarter: 2023Q4

REPORT INFORMATION
  Report Type: Spontaneous
  Country: US (occurrence: US)
  Receive Date: 20230109
  Receipt Date: 20231011
  Transmission Date: 20240110
  Serious: No
  Sender: FDA-Public Use
  Company Number: US-KARYOPHARM-2022KPT001433

PATIENT

DRUGS (6)
  1. XPOVIO [Suspect]
     Active Substance: SELINEXOR
     Indication: Plasma cell myeloma
     Dosage: 80 MG, WEEKLY FOR 3 WEEKS AND THEN OFF OF 1 WEEK
     Route: 048
     Dates: start: 20221108
  2. XPOVIO [Suspect]
     Active Substance: SELINEXOR
     Dosage: 80 MG, EVERY OTHER WEEK
     Route: 048
  3. XPOVIO [Suspect]
     Active Substance: SELINEXOR
     Dosage: 40 MG, EVERY OTHER WEEK
     Route: 048
     Dates: start: 2023, end: 2023
  4. XPOVIO [Suspect]
     Active Substance: SELINEXOR
     Dosage: 40 MG, 1X/2 WEEKS
     Dates: start: 2023
  5. CARFILZOMIB [Concomitant]
     Active Substance: CARFILZOMIB
     Dosage: UNK, 2X/WEEK TUESDAYS AND WEDNESDAYS
  6. DEXAMETHASONE [Concomitant]
     Active Substance: DEXAMETHASONE
     Dosage: UNK, 2X/WEEK TUESDAYS AND WEDNESDAYS

REACTIONS (8)
  - Full blood count decreased [Unknown]
  - Feeling cold [Not Recovered/Not Resolved]
  - SARS-CoV-2 test positive [Unknown]
  - Back pain [Not Recovered/Not Resolved]
  - Neck pain [Not Recovered/Not Resolved]
  - Decreased appetite [Not Recovered/Not Resolved]
  - Asthenia [Not Recovered/Not Resolved]
  - Fatigue [Not Recovered/Not Resolved]

NARRATIVE: CASE EVENT DATE: 20220101
